FAERS Safety Report 4325296-6 (Version None)
Quarter: 2004Q1

REPORT INFORMATION
  Report Type: 
  Country: None (occurrence: None)
  Receive Date: 20040326
  Receipt Date: 20040326
  Transmission Date: 20041129
  Serious: Yes (Hospitalization, Disabling)
  Sender: FDA-Public Use
  Company Number: None

PATIENT
  Age: 33 Year
  Sex: Female
  Weight: 56.246 kg

DRUGS (5)
  1. KLONOPIN [Suspect]
     Indication: ARTHROPATHY
     Dosage: 0.5 MG/0.2 BID SID ORAL
     Route: 048
     Dates: start: 20030605, end: 20040325
  2. KLONOPIN [Suspect]
     Indication: PANIC DISORDER
     Dosage: 0.5 MG/0.2 BID SID ORAL
     Route: 048
     Dates: start: 20030605, end: 20040325
  3. EFFEXOR [Suspect]
     Indication: DEPRESSION
     Dosage: 1 TAB 1 TABLET ORAL
     Route: 048
     Dates: start: 20030601, end: 20040601
  4. EFFEXOR [Suspect]
     Indication: POST-TRAUMATIC STRESS DISORDER
     Dosage: 1 TAB 1 TABLET ORAL
     Route: 048
     Dates: start: 20030601, end: 20040601
  5. IBUPROFEN [Concomitant]

REACTIONS (35)
  - ACTIVITIES OF DAILY LIVING IMPAIRED [None]
  - AMNESIA [None]
  - ANXIETY [None]
  - ARTHROPATHY [None]
  - BRUXISM [None]
  - DRUG WITHDRAWAL SYNDROME [None]
  - DYSPHAGIA [None]
  - EAR INFECTION [None]
  - EATING DISORDER [None]
  - EUSTACHIAN TUBE DYSFUNCTION [None]
  - FACIAL PAIN [None]
  - HALLUCINATION [None]
  - HEADACHE [None]
  - HYPERACUSIS [None]
  - IMPAIRED DRIVING ABILITY [None]
  - IMPAIRED WORK ABILITY [None]
  - INFLAMMATION [None]
  - INFLUENZA LIKE ILLNESS [None]
  - LIGAMENT DISORDER [None]
  - MUSCLE CONTRACTURE [None]
  - MUSCLE SPASTICITY [None]
  - MUSCLE TWITCHING [None]
  - NAUSEA [None]
  - NECK PAIN [None]
  - PALPITATIONS [None]
  - PANIC DISORDER [None]
  - SENSATION OF PRESSURE IN EAR [None]
  - SINUS PAIN [None]
  - SINUSITIS [None]
  - SLEEP DISORDER [None]
  - TINNITUS [None]
  - TOOTH DISORDER [None]
  - TREMOR [None]
  - VERTIGO [None]
  - WEIGHT DECREASED [None]
